FAERS Safety Report 4889772-X (Version None)
Quarter: 2006Q1

REPORT INFORMATION
  Report Type: 
  Country: None (occurrence: None)
  Receive Date: 20060123
  Receipt Date: 20060123
  Transmission Date: 20060701
  Serious: No
  Sender: FDA-Public Use
  Company Number: None

PATIENT

DRUGS (3)
  1. PEDIACARE NIGHTTIME COLD [Suspect]
     Indication: INSOMNIA
     Dosage: 1 TABLESPOON ONCE PO
     Route: 048
  2. PEDIACARE NIGHTTIME COLD [Suspect]
     Indication: NASOPHARYNGITIS
     Dosage: 1 TABLESPOON ONCE PO
     Route: 048
  3. PEDIACARE INFANT  COLD FORMULA [Concomitant]

REACTIONS (2)
  - CIRCUMSTANCE OR INFORMATION CAPABLE OF LEADING TO MEDICATION ERROR [None]
  - MEDICATION ERROR [None]
